FAERS Safety Report 6085586-6 (Version None)
Quarter: 2009Q1

REPORT INFORMATION
  Report Type: 
  Country: None (occurrence: None)
  Receive Date: 20090220
  Receipt Date: 20090210
  Transmission Date: 20090719
  Serious: Yes (Hospitalization)
  Sender: FDA-Public Use
  Company Number: US-JNJFOC-20081206953

PATIENT
  Sex: Female
  Weight: 101.15 kg

DRUGS (13)
  1. REMICADE [Suspect]
     Route: 042
  2. REMICADE [Suspect]
     Indication: PSORIATIC ARTHROPATHY
     Route: 042
  3. DIOVAN HCT [Concomitant]
     Dosage: DOSE IS 160/25 DAILY
  4. SYNTHROID [Concomitant]
  5. ASPIRIN [Concomitant]
  6. ACTOS [Concomitant]
  7. PRILOSEC [Concomitant]
  8. AMLACTIN [Concomitant]
  9. LODINE [Concomitant]
  10. TRILEPTAL [Concomitant]
  11. ALBUTEROL [Concomitant]
  12. ASMACORT [Concomitant]
  13. ASTELIN [Concomitant]

REACTIONS (1)
  - PNEUMONIA CRYPTOCOCCAL [None]
